FAERS Safety Report 18753504 (Version 2)
Quarter: 2021Q1

REPORT INFORMATION
  Report Type: Spontaneous
  Country: PT (occurrence: PT)
  Receive Date: 20210118
  Receipt Date: 20210120
  Transmission Date: 20210419
  Serious: Yes (Other)
  Sender: FDA-Public Use
  Company Number: PT-009507513-2101PRT007890

PATIENT
  Age: 62 Year
  Sex: Male

DRUGS (16)
  1. PEMBROLIZUMAB. [Suspect]
     Active Substance: PEMBROLIZUMAB
     Dosage: BASELINE
     Dates: start: 20201001
  2. CARBOPLATIN. [Suspect]
     Active Substance: CARBOPLATIN
     Indication: LUNG ADENOCARCINOMA
     Dosage: BASELINE
     Dates: start: 20200909
  3. PEMETREXED DISODIUM [Suspect]
     Active Substance: PEMETREXED DISODIUM
     Dosage: BASELINE
     Dates: start: 20201112
  4. PEMBROLIZUMAB. [Suspect]
     Active Substance: PEMBROLIZUMAB
     Dosage: BASELINE
     Dates: start: 20201022
  5. CARBOPLATIN. [Suspect]
     Active Substance: CARBOPLATIN
     Dosage: BASELINE
     Dates: start: 20201001
  6. CARBOPLATIN. [Suspect]
     Active Substance: CARBOPLATIN
     Dosage: BASELINE
     Dates: start: 20201022
  7. CARBOPLATIN. [Suspect]
     Active Substance: CARBOPLATIN
     Dosage: BASELINE
     Dates: start: 20201112
  8. PEMBROLIZUMAB. [Suspect]
     Active Substance: PEMBROLIZUMAB
     Indication: LUNG ADENOCARCINOMA
     Dosage: BASELINE
     Dates: start: 20200909
  9. PEMETREXED DISODIUM [Suspect]
     Active Substance: PEMETREXED DISODIUM
     Dosage: MAINTENANCE
     Dates: start: 20201203
  10. PEMETREXED DISODIUM [Suspect]
     Active Substance: PEMETREXED DISODIUM
     Indication: LUNG ADENOCARCINOMA
     Dosage: BASELINE
     Dates: start: 20200909
  11. PEMETREXED DISODIUM [Suspect]
     Active Substance: PEMETREXED DISODIUM
     Dosage: MAINTENANCE
     Dates: start: 20201228
  12. PEMBROLIZUMAB. [Suspect]
     Active Substance: PEMBROLIZUMAB
     Dosage: BASELINE
     Dates: start: 20201112
  13. PEMBROLIZUMAB. [Suspect]
     Active Substance: PEMBROLIZUMAB
     Dosage: MAINTENANCE
     Dates: start: 20201228
  14. PEMETREXED DISODIUM [Suspect]
     Active Substance: PEMETREXED DISODIUM
     Dosage: BASELINE
     Dates: start: 20201022
  15. PEMBROLIZUMAB. [Suspect]
     Active Substance: PEMBROLIZUMAB
     Dosage: MAINTENANCE
     Dates: start: 20201203
  16. PEMETREXED DISODIUM [Suspect]
     Active Substance: PEMETREXED DISODIUM
     Dosage: BASELINE
     Dates: start: 20201001

REACTIONS (2)
  - Hepatotoxicity [Unknown]
  - Hypothyroidism [Unknown]

NARRATIVE: CASE EVENT DATE: 20201001
